FAERS Safety Report 14584759 (Version 1)
Quarter: 2018Q1

REPORT INFORMATION
  Report Type: Report from Study
  Country: DE (occurrence: DE)
  Receive Date: 20180301
  Receipt Date: 20180301
  Transmission Date: 20180509
  Serious: Yes (Other)
  Sender: FDA-Public Use
  Company Number: DE-ROCHE-1751605

PATIENT
  Age: 49 Year
  Sex: Female
  Weight: 94 kg

DRUGS (2)
  1. BEVACIZUMAB. [Suspect]
     Active Substance: BEVACIZUMAB
     Indication: BREAST CANCER
     Route: 042
     Dates: start: 20160112
  2. XELODA [Suspect]
     Active Substance: CAPECITABINE
     Indication: BREAST CANCER
     Route: 048
     Dates: start: 20160112, end: 20160112

REACTIONS (1)
  - Embolism [Recovered/Resolved]

NARRATIVE: CASE EVENT DATE: 20160202
